FAERS Safety Report 6396328-9 (Version None)
Quarter: 2009Q4

REPORT INFORMATION
  Report Type: 
  Country: None (occurrence: None)
  Receive Date: 20091012
  Receipt Date: 20090930
  Transmission Date: 20100525
  Serious: Yes (Hospitalization)
  Sender: FDA-Public Use
  Company Number: ES-RANBAXY-2009RR-24554

PATIENT
  Age: 56 Year
  Sex: Male

DRUGS (6)
  1. SIMVASTATIN [Suspect]
     Indication: BLOOD CHOLESTEROL INCREASED
     Dosage: 10 MG, QD
  2. SIMVASTATIN [Suspect]
     Indication: BLOOD TRIGLYCERIDES INCREASED
  3. TACROLIMUS [Suspect]
     Indication: IMMUNOSUPPRESSION
  4. RAPAMYCIN [Suspect]
     Dosage: UNK
     Dates: start: 20070701
  5. MYCOPHENOLATE MOFETIL [Concomitant]
     Indication: IMMUNOSUPPRESSION
     Dosage: UNK
     Dates: end: 20070701
  6. METHYLPREDNISOLONE [Concomitant]
     Dosage: 500 MG, UNK

REACTIONS (3)
  - DRUG INTERACTION [None]
  - RENAL FAILURE ACUTE [None]
  - RHABDOMYOLYSIS [None]
